FAERS Safety Report 5540618-6 (Version None)
Quarter: 2007Q4

REPORT INFORMATION
  Report Type: 
  Country: None (occurrence: None)
  Receive Date: 20071129
  Receipt Date: 20070418
  Transmission Date: 20080405
  Serious: Yes (Hospitalization)
  Sender: FDA-Public Use
  Company Number: US200704004667

PATIENT
  Age: 22 Year
  Sex: Male

DRUGS (3)
  1. ZYPREXA [Suspect]
     Dosage: 20 MG, 2/D, ORAL; 60 MG, DAILY (1/D) ORAL; ORAL
     Route: 048
     Dates: start: 20070401, end: 20070401
  2. ZYPREXA [Suspect]
     Dosage: 20 MG, 2/D, ORAL; 60 MG, DAILY (1/D) ORAL; ORAL
     Route: 048
     Dates: start: 20070401
  3. ZYPREXA [Suspect]
     Dosage: 20 MG, 2/D, ORAL; 60 MG, DAILY (1/D) ORAL; ORAL
     Route: 048
     Dates: start: 20070401

REACTIONS (2)
  - MANIA [None]
  - OVERDOSE [None]
